FAERS Safety Report 6971528-5 (Version None)
Quarter: 2010Q3

REPORT INFORMATION
  Report Type: 
  Country: None (occurrence: None)
  Receive Date: 20100908
  Receipt Date: 20100827
  Transmission Date: 20110219
  Serious: Yes (Death)
  Sender: FDA-Public Use
  Company Number: GXKR2010GR09773

PATIENT
  Age: 49 Year
  Sex: Male

DRUGS (3)
  1. PREDNISOLONE (NGX) [Suspect]
     Indication: VASCULITIS
     Route: 065
  2. PREDNISOLONE (NGX) [Suspect]
     Dosage: 60 MG/DAY
     Route: 065
  3. CYCLOPHOSPHAMIDE [Suspect]
     Indication: VASCULITIS
     Dosage: UNK
     Route: 048

REACTIONS (14)
  - ASTHENIA [None]
  - CARDIAC ARREST [None]
  - COUGH [None]
  - DYSPNOEA [None]
  - ENDOTRACHEAL INTUBATION [None]
  - HAEMOPTYSIS [None]
  - HYPOTENSION [None]
  - NEUTROPHILIA [None]
  - NORMOCHROMIC NORMOCYTIC ANAEMIA [None]
  - PYREXIA [None]
  - RESUSCITATION [None]
  - STRONGYLOIDIASIS [None]
  - TACHYCARDIA [None]
  - TACHYPNOEA [None]
